FAERS Safety Report 17833711 (Version 1)
Quarter: 2020Q2

REPORT INFORMATION
  Report Type: Spontaneous
  Country: US (occurrence: US)
  Receive Date: 20200527
  Receipt Date: 20200527
  Transmission Date: 20200714
  Serious: Yes (Life-Threatening, Hospitalization, Disabling)
  Sender: FDA-Public Use
  Company Number: None

PATIENT
  Age: 19 Year
  Sex: Female

DRUGS (1)
  1. FECAL MICROBIOTA TRANSPLANTATION (FMT) [Suspect]
     Active Substance: FECAL MICROBIOTA
     Indication: CLOSTRIDIUM DIFFICILE INFECTION
     Dates: start: 20180925, end: 20180925

REACTIONS (5)
  - Guillain-Barre syndrome [None]
  - Paralysis [None]
  - Malaise [None]
  - Chronic inflammatory demyelinating polyradiculoneuropathy [None]
  - Drug ineffective [None]

NARRATIVE: CASE EVENT DATE: 20180925
